FAERS Safety Report 10354233 (Version 1)
Quarter: 2014Q3

REPORT INFORMATION
  Report Type: Spontaneous
  Country: US (occurrence: None)
  Receive Date: 20140729
  Receipt Date: 20140729
  Transmission Date: 20150326
  Serious: Yes (Disabling)
  Sender: FDA-Public Use
  Company Number: None

PATIENT
  Age: 24 Year
  Sex: Male
  Weight: 81.65 kg

DRUGS (4)
  1. DEPAKOTE GENERIC 500 MG [Suspect]
     Active Substance: DIVALPROEX SODIUM
     Dates: start: 2011
  2. TEGRETOL [Concomitant]
     Active Substance: CARBAMAZEPINE
  3. DEPAKOTE GENERIC 250 MG [Suspect]
     Active Substance: DIVALPROEX SODIUM
     Dates: start: 2011
  4. LYRICA [Concomitant]
     Active Substance: PREGABALIN

REACTIONS (3)
  - Convulsion [None]
  - Dizziness [None]
  - Tremor [None]
